FAERS Safety Report 18814573 (Version 2)
Quarter: 2021Q2

REPORT INFORMATION
  Report Type: Report from Study
  Country: HK (occurrence: HK)
  Receive Date: 20210201
  Receipt Date: 20210417
  Transmission Date: 20210717
  Serious: Yes (Hospitalization)
  Sender: FDA-Public Use
  Company Number: HK-ROCHE-2758297

PATIENT
  Age: 62 Year
  Sex: Male
  Weight: 77.8 kg

DRUGS (5)
  1. CABOZANTINIB [Suspect]
     Active Substance: CABOZANTINIB
     Indication: HEPATOCELLULAR CARCINOMA
     Dosage: ON 17 JAN 2021, THE PATIENT RECEIVED THE MOST RECENT DOSE OF CABOZANTINIB PRIOR TO THE EVENT ONSET
     Route: 048
     Dates: start: 20200108
  2. NORVASC [Concomitant]
     Active Substance: AMLODIPINE BESYLATE
  3. ATEZOLIZUMAB. [Suspect]
     Active Substance: ATEZOLIZUMAB
     Indication: HEPATOCELLULAR CARCINOMA
     Dosage: ON 04/JAN/2021, THE PATIENT RECEIVED THE MOST RECENT DOSE OF ATEZOLIZUMAB
     Route: 041
     Dates: start: 20200108
  4. CABOZANTINIB [Suspect]
     Active Substance: CABOZANTINIB
     Route: 048
  5. LISINOPRIL. [Concomitant]
     Active Substance: LISINOPRIL

REACTIONS (1)
  - Autoimmune hepatitis [Recovered/Resolved]

NARRATIVE: CASE EVENT DATE: 20210117
